FAERS Safety Report 18884645 (Version 3)
Quarter: 2021Q1

REPORT INFORMATION
  Report Type: Report from Study
  Country: None (occurrence: CA)
  Receive Date: 20210212
  Receipt Date: 20210308
  Transmission Date: 20210420
  Serious: Yes (Hospitalization, Other)
  Sender: FDA-Public Use
  Company Number: CA-ABBVIE-21K-028-3771715-00

PATIENT
  Age: 61 Year
  Sex: Female

DRUGS (1)
  1. SKYRIZI [Suspect]
     Active Substance: RISANKIZUMAB-RZAA
     Indication: PSORIASIS
     Route: 058
     Dates: start: 20201110

REACTIONS (8)
  - Atrial fibrillation [Unknown]
  - Somnolence [Recovered/Resolved]
  - Cardiac flutter [Unknown]
  - Cholecystectomy [Recovered/Resolved]
  - Appendicitis [Recovered/Resolved]
  - Grip strength decreased [Unknown]
  - Cardiac failure [Not Recovered/Not Resolved]
  - Disorientation [Recovered/Resolved]

NARRATIVE: CASE EVENT DATE: 20210127
